FAERS Safety Report 4533084-0 (Version None)
Quarter: 2004Q4

REPORT INFORMATION
  Report Type: 
  Country: None (occurrence: None)
  Receive Date: 20041210
  Receipt Date: 20040907
  Transmission Date: 20050328
  Serious: No
  Sender: FDA-Public Use
  Company Number: 2004-00472

PATIENT
  Age: 80 Year
  Sex: Male

DRUGS (10)
  1. VELCADE [Suspect]
     Indication: MULTIPLE MYELOMA
     Dates: start: 20040824, end: 20040903
  2. . [Concomitant]
  3. . [Concomitant]
  4. . [Concomitant]
  5. . [Concomitant]
  6. . [Concomitant]
  7. . [Concomitant]
  8. . [Concomitant]
  9. . [Concomitant]
  10. XYLOPRIM (ALLOPURINOL) [Concomitant]

REACTIONS (3)
  - NAUSEA [None]
  - RASH MACULO-PAPULAR [None]
  - VOMITING [None]
